FAERS Safety Report 24360118 (Version 11)
Quarter: 2025Q1

REPORT INFORMATION
  Report Type: Report from Study
  Country: CO (occurrence: CO)
  Receive Date: 20240925
  Receipt Date: 20250309
  Transmission Date: 20250409
  Serious: Yes (Hospitalization, Disabling, Other)
  Sender: AMGEN
  Company Number: CO-AMGEN-COLSL2024159769

PATIENT
  Age: 34 Year
  Sex: Male

DRUGS (5)
  1. NPLATE [Suspect]
     Active Substance: ROMIPLOSTIM
     Indication: Immune thrombocytopenia
     Dosage: 300 MICROGRAM, QWK
     Route: 058
     Dates: start: 20240809, end: 2024
  2. NPLATE [Suspect]
     Active Substance: ROMIPLOSTIM
     Dosage: 350 MICROGRAM, QWK
     Route: 058
     Dates: start: 202410, end: 2024
  3. NPLATE [Suspect]
     Active Substance: ROMIPLOSTIM
     Dosage: 200 MICROGRAM, QWK
     Route: 058
     Dates: start: 2024, end: 20241127
  4. NPLATE [Suspect]
     Active Substance: ROMIPLOSTIM
     Dosage: 290 MICROGRAM, QWK
     Route: 058
     Dates: start: 2024
  5. NPLATE [Suspect]
     Active Substance: ROMIPLOSTIM
     Dosage: 170 MICROGRAM, QWK
     Route: 058

REACTIONS (11)
  - Thrombocytosis [Recovered/Resolved]
  - Asthenia [Not Recovered/Not Resolved]
  - Thrombocytopenia [Recovered/Resolved]
  - Syncope [Not Recovered/Not Resolved]
  - Bacterial infection [Not Recovered/Not Resolved]
  - Nosocomial infection [Not Recovered/Not Resolved]
  - Pain [Recovered/Resolved]
  - Dizziness [Recovered/Resolved]
  - Headache [Not Recovered/Not Resolved]
  - Drug ineffective [Recovered/Resolved]
  - Pain in extremity [Not Recovered/Not Resolved]

NARRATIVE: CASE EVENT DATE: 20240925
